FAERS Safety Report 18550307 (Version 4)
Quarter: 2021Q1

REPORT INFORMATION
  Report Type: Spontaneous
  Country: JP (occurrence: JP)
  Receive Date: 20201126
  Receipt Date: 20210319
  Transmission Date: 20210419
  Serious: Yes (Hospitalization, Disabling)
  Sender: FDA-Public Use
  Company Number: JP-JNJFOC-20200528755

PATIENT
  Age: 70 Year
  Sex: Male

DRUGS (11)
  1. LEXOTAN [Concomitant]
     Active Substance: BROMAZEPAM
     Indication: NEUROSIS
     Route: 048
  2. HACHIMIJIOGAN [Concomitant]
     Active Substance: HERBALS
     Indication: BENIGN PROSTATIC HYPERPLASIA
     Dosage: GRANULATED POWDER
     Route: 048
     Dates: start: 20191102
  3. METOLATE [Suspect]
     Active Substance: METHOTREXATE
     Indication: RHEUMATOID ARTHRITIS
     Route: 048
     Dates: end: 20201020
  4. METOLATE [Suspect]
     Active Substance: METHOTREXATE
     Route: 048
     Dates: start: 2009, end: 20201107
  5. PREDNISOLONE. [Concomitant]
     Active Substance: PREDNISOLONE
     Indication: RHEUMATOID ARTHRITIS
     Route: 048
  6. HYPEN                              /00613801/ [Concomitant]
     Active Substance: ETODOLAC
     Indication: RHEUMATOID ARTHRITIS
     Route: 048
  7. FOLIAMIN [Concomitant]
     Active Substance: FOLIC ACID
     Indication: PROPHYLAXIS
     Route: 048
     Dates: end: 20201107
  8. URIEF [Concomitant]
     Active Substance: SILODOSIN
     Indication: BENIGN PROSTATIC HYPERPLASIA
     Route: 048
  9. SIMPONI [Suspect]
     Active Substance: GOLIMUMAB
     Indication: RHEUMATOID ARTHRITIS
     Route: 058
     Dates: start: 20180124, end: 20200502
  10. KEISHIKASHAKUYAKUDAIOTO [Concomitant]
     Active Substance: HERBALS
     Indication: DYSCHEZIA
     Dosage: GRANULATED POWDER
     Route: 048
     Dates: start: 20180927
  11. PARIET [Concomitant]
     Active Substance: RABEPRAZOLE SODIUM
     Indication: GASTRITIS PROPHYLAXIS
     Route: 048
     Dates: start: 20200303

REACTIONS (2)
  - Hodgkin^s disease [Recovered/Resolved]
  - Demyelination [Recovered/Resolved]

NARRATIVE: CASE EVENT DATE: 202004
